FAERS Safety Report 4765441-1 (Version None)
Quarter: 2005Q3

REPORT INFORMATION
  Report Type: 
  Country: None (occurrence: None)
  Receive Date: 20050906
  Receipt Date: 20050815
  Transmission Date: 20060218
  Serious: Yes (Other)
  Sender: FDA-Public Use
  Company Number: EWC050845466

PATIENT
  Age: 71 Year
  Sex: Female

DRUGS (4)
  1. ZYPREXA [Suspect]
     Indication: PARANOIA
     Dosage: 10 MG/2 DAY
     Dates: start: 19990329, end: 20050519
  2. ZYPREXA [Suspect]
     Indication: SCHIZOPHRENIA
     Dosage: 10 MG/2 DAY
     Dates: start: 19990329, end: 20050519
  3. IMOVANE (ZOPICLONE) [Concomitant]
  4. XANAX [Concomitant]

REACTIONS (2)
  - ANURIA [None]
  - PROCEDURAL COMPLICATION [None]
